FAERS Safety Report 9004461 (Version 2)
Quarter: 2013Q1

REPORT INFORMATION
  Report Type: Spontaneous
  Country: US (occurrence: US)
  Receive Date: 20130108
  Receipt Date: 20130306
  Transmission Date: 20140127
  Serious: No
  Sender: FDA-Public Use
  Company Number: US-ASTRAZENECA-2012SE96129

PATIENT
  Age: 52 Year
  Sex: Female
  Weight: 95.7 kg

DRUGS (3)
  1. SYMBICORT PMDI [Suspect]
     Indication: ASTHMA
     Dosage: 160 DAILY
     Route: 055
  2. LISINOPRIL [Suspect]
     Indication: HYPERTENSION
     Route: 048
     Dates: start: 20120202
  3. ZIAC [Concomitant]
     Indication: HYPERTENSION
     Route: 048
     Dates: start: 20080307

REACTIONS (6)
  - Vomiting [Unknown]
  - Increased upper airway secretion [Unknown]
  - Hypertension [Unknown]
  - Cough [Unknown]
  - Drug dose omission [Not Recovered/Not Resolved]
  - Drug ineffective [Unknown]
